FAERS Safety Report 9828570 (Version 1)
Quarter: 2014Q1

REPORT INFORMATION
  Report Type: Spontaneous
  Country: US (occurrence: US)
  Receive Date: 20140117
  Receipt Date: 20140117
  Transmission Date: 20141002
  Serious: Yes (Hospitalization)
  Sender: FDA-Public Use
  Company Number: US-WATSON-2014-00404

PATIENT
  Sex: Female

DRUGS (1)
  1. NORINYL 1/50-28 (WATSON LABORATORIES) [Suspect]
     Indication: ORAL CONTRACEPTION

REACTIONS (1)
  - Investigation [Unknown]
